FAERS Safety Report 8189993-7 (Version None)
Quarter: 2012Q1

REPORT INFORMATION
  Report Type: 
  Country: None (occurrence: None)
  Receive Date: 20120307
  Receipt Date: 20120224
  Transmission Date: 20120608
  Serious: No
  Sender: FDA-Public Use
  Company Number: US-JNJFOC-20120213949

PATIENT
  Age: 52 Year
  Sex: Male

DRUGS (1)
  1. INVEGA SUSTENNA [Suspect]
     Indication: PRODUCT USED FOR UNKNOWN INDICATION
     Route: 030
     Dates: start: 20110101

REACTIONS (2)
  - EXCESSIVE SEXUAL FANTASIES [None]
  - SEXUALLY INAPPROPRIATE BEHAVIOUR [None]
